FAERS Safety Report 21751494 (Version 1)
Quarter: 2022Q4

REPORT INFORMATION
  Report Type: Report from Study
  Country: CA (occurrence: CA)
  Receive Date: 20221220
  Receipt Date: 20221220
  Transmission Date: 20230112
  Serious: Yes (Hospitalization, Other)
  Sender: FDA-Public Use
  Company Number: CA-JNJFOC-20220852623

PATIENT
  Age: 42 Year
  Sex: Male
  Weight: 88 kg

DRUGS (7)
  1. STELARA [Suspect]
     Active Substance: USTEKINUMAB
     Indication: Crohn^s disease
     Dosage: INJECTION GIVEN ON 08-SEP-2020
     Route: 058
     Dates: start: 20191113
  2. STELARA [Suspect]
     Active Substance: USTEKINUMAB
     Dosage: INFUSION 520 MG WEEK 0
     Route: 042
  3. STELARA [Suspect]
     Active Substance: USTEKINUMAB
     Route: 058
  4. STELARA [Suspect]
     Active Substance: USTEKINUMAB
     Dosage: 90 MG SUBCUTANEOUS WEEK 12 AND THEN EVERY 4 WEEKS
     Route: 058
  5. STELARA [Suspect]
     Active Substance: USTEKINUMAB
     Route: 058
  6. STELARA [Suspect]
     Active Substance: USTEKINUMAB
     Route: 058
  7. BACTRIM [Concomitant]
     Active Substance: SULFAMETHOXAZOLE\TRIMETHOPRIM
     Indication: Infection prophylaxis
     Dosage: EVERY DAY IN THE MORNING AND WOULD BE ON BACTRIM UNTIL JAN-2023
     Route: 065
     Dates: start: 202208

REACTIONS (5)
  - Postoperative wound infection [Recovered/Resolved]
  - Liver transplant [Recovered/Resolved]
  - Faecal calprotectin increased [Unknown]
  - Inappropriate schedule of product administration [Unknown]
  - Off label use [Unknown]

NARRATIVE: CASE EVENT DATE: 20200908
